FAERS Safety Report 23895888 (Version 3)
Quarter: 2025Q2

REPORT INFORMATION
  Report Type: Spontaneous
  Country: CA (occurrence: CA)
  Receive Date: 20240524
  Receipt Date: 20250606
  Transmission Date: 20250717
  Serious: Yes (Death, Hospitalization, Other)
  Sender: TAKEDA
  Company Number: CA-TAKEDA-2024TUS048991

PATIENT
  Age: 74 Year
  Sex: Female

DRUGS (4)
  1. GAMMAGARD LIQUID [Suspect]
     Active Substance: HUMAN IMMUNOGLOBULIN G
     Indication: Immune thrombocytopenia
     Dates: start: 20230616, end: 20230616
  2. GAMMAGARD LIQUID [Suspect]
     Active Substance: HUMAN IMMUNOGLOBULIN G
     Indication: Thrombocytopenia
  3. PREDNISONE [Concomitant]
     Active Substance: PREDNISONE
  4. DIPHENHYDRAMINE [Concomitant]
     Active Substance: DIPHENHYDRAMINE

REACTIONS (14)
  - Unresponsive to stimuli [Fatal]
  - Nodal rhythm [Fatal]
  - Heart rate abnormal [Fatal]
  - Respiratory arrest [Fatal]
  - Body temperature decreased [Fatal]
  - Pulse absent [Fatal]
  - Shock [Fatal]
  - Hypoxia [Fatal]
  - Somnolence [Fatal]
  - Bradycardia [Fatal]
  - Peripheral coldness [Fatal]
  - Anaphylactic reaction [Fatal]
  - Hypotension [Fatal]
  - Off label use [Unknown]

NARRATIVE: CASE EVENT DATE: 20230616
